FAERS Safety Report 24531484 (Version 1)
Quarter: 2024Q4

REPORT INFORMATION
  Report Type: Report from Study
  Country: US (occurrence: US)
  Receive Date: 20241022
  Receipt Date: 20241022
  Transmission Date: 20250114
  Serious: Yes (Death)
  Sender: INSMED
  Company Number: US-INSMED, INC.-2024-04061-US

PATIENT
  Age: 74 Year
  Sex: Male

DRUGS (1)
  1. ARIKAYCE [Suspect]
     Active Substance: AMIKACIN
     Indication: Mycobacterial infection
     Dosage: 590 MILLIGRAM, QD
     Route: 055
     Dates: start: 20240714, end: 20240910

REACTIONS (1)
  - Death [Fatal]

NARRATIVE: CASE EVENT DATE: 20240910
